FAERS Safety Report 5221979-4 (Version None)
Quarter: 2007Q1

REPORT INFORMATION
  Report Type: 
  Country: None (occurrence: None)
  Receive Date: 20070129
  Receipt Date: 20060404
  Transmission Date: 20070707
  Serious: No
  Sender: FDA-Public Use
  Company Number: US-GLAXOSMITHKLINE-A0595365A

PATIENT
  Age: 46 Year
  Sex: Female
  Weight: 55.9 kg

DRUGS (1)
  1. WELLBUTRIN [Suspect]
     Indication: DEPRESSION
     Route: 048

REACTIONS (3)
  - APHTHOUS STOMATITIS [None]
  - EAR PAIN [None]
  - HEADACHE [None]
